FAERS Safety Report 4578735-X (Version None)
Quarter: 2005Q1

REPORT INFORMATION
  Report Type: 
  Country: None (occurrence: None)
  Receive Date: 20050211
  Receipt Date: 20050131
  Transmission Date: 20050727
  Serious: Yes (Hospitalization)
  Sender: FDA-Public Use
  Company Number: FR-GLAXOSMITHKLINE-B0370255A

PATIENT
  Age: 68 Year
  Sex: Male
  Weight: 75 kg

DRUGS (12)
  1. ZINNAT [Suspect]
     Dosage: 1.5G SINGLE DOSE
     Route: 042
     Dates: start: 20050105, end: 20050105
  2. TRACRIUM [Suspect]
     Indication: INDUCTION OF ANAESTHESIA
     Dosage: 260MG SINGLE DOSE
     Route: 042
     Dates: start: 20050105, end: 20050105
  3. ACUPAN [Suspect]
     Dosage: 20MG SINGLE DOSE
     Route: 042
     Dates: start: 20050105, end: 20050105
  4. KETAMINE HCL [Suspect]
     Route: 042
     Dates: start: 20050105, end: 20050105
  5. DIPRIVAN [Suspect]
     Indication: INDUCTION OF ANAESTHESIA
     Route: 042
     Dates: start: 20050105, end: 20050105
  6. SUFENTA [Suspect]
     Indication: INDUCTION OF ANAESTHESIA
     Dosage: 40MCG SINGLE DOSE
     Route: 042
     Dates: start: 20050105, end: 20050105
  7. BISOPROLOL FUMARATE [Concomitant]
     Dosage: 1TAB PER DAY
     Route: 065
  8. PRETERAX [Concomitant]
     Dosage: 1TAB PER DAY
     Route: 065
  9. ATARAX [Concomitant]
     Dosage: 100MG SINGLE DOSE
     Route: 065
     Dates: start: 20050104, end: 20050105
  10. EPHEDRINE SUL CAP [Concomitant]
     Route: 065
     Dates: start: 20050105, end: 20050105
  11. NEOSYNEPHRINE [Concomitant]
     Route: 065
     Dates: start: 20050105, end: 20050105
  12. NORADRENALINE [Concomitant]
     Route: 065
     Dates: start: 20050105, end: 20050105

REACTIONS (8)
  - ANAESTHETIC COMPLICATION [None]
  - ANAPHYLACTIC SHOCK [None]
  - BRADYCARDIA [None]
  - CIRCULATORY COLLAPSE [None]
  - DRUG INEFFECTIVE [None]
  - GENERALISED ERYTHEMA [None]
  - HYPOTENSION [None]
  - TACHYCARDIA [None]
